FAERS Safety Report 11026028 (Version 3)
Quarter: 2015Q2

REPORT INFORMATION
  Report Type: Spontaneous
  Country: US (occurrence: US)
  Receive Date: 20150414
  Receipt Date: 20150421
  Transmission Date: 20150821
  Serious: Yes (Other)
  Sender: FDA-Public Use
  Company Number: US-PFIZER INC-2015124135

PATIENT
  Age: 72 Year
  Sex: Male
  Weight: 88 kg

DRUGS (11)
  1. NARDIL [Suspect]
     Active Substance: PHENELZINE SULFATE
     Indication: MAJOR DEPRESSION
     Dosage: 60 MG, DAILY (4 TABLETS A DAY)
     Dates: start: 201504
  2. NARDIL [Suspect]
     Active Substance: PHENELZINE SULFATE
     Dosage: 15 MG, DAILY
     Dates: start: 201504, end: 201504
  3. NARDIL [Suspect]
     Active Substance: PHENELZINE SULFATE
     Dosage: 90 MG, DAILY
     Route: 048
     Dates: start: 201404
  4. NARDIL [Suspect]
     Active Substance: PHENELZINE SULFATE
     Dosage: 30 MG, DAILY
     Dates: start: 201504
  5. NARDIL [Suspect]
     Active Substance: PHENELZINE SULFATE
     Dosage: 45 MG, DAILY
     Dates: start: 201404
  6. PROVIGIL [Concomitant]
     Active Substance: MODAFINIL
     Indication: SLEEP APNOEA SYNDROME
     Dosage: 200 MG, 1X/DAY
  7. PROVIGIL [Concomitant]
     Active Substance: MODAFINIL
     Indication: DEPRESSED LEVEL OF CONSCIOUSNESS
  8. ATIVAN [Concomitant]
     Active Substance: LORAZEPAM
     Indication: ANXIETY
     Dosage: UNK (1-2 MG IN EVENING BEFORE BED
  9. SYNTHROID [Concomitant]
     Active Substance: LEVOTHYROXINE SODIUM
     Indication: THYROID DISORDER
     Dosage: 50 ?G, 1X/DAY
  10. NARDIL [Suspect]
     Active Substance: PHENELZINE SULFATE
     Dosage: 75 MG, DAILY
     Dates: start: 201504
  11. ATIVAN [Concomitant]
     Active Substance: LORAZEPAM
     Indication: INSOMNIA

REACTIONS (5)
  - Inappropriate antidiuretic hormone secretion [Unknown]
  - Gait disturbance [Unknown]
  - Asthenia [Unknown]
  - Hyponatraemia [Not Recovered/Not Resolved]
  - Glucose tolerance impaired [Unknown]

NARRATIVE: CASE EVENT DATE: 201404
